FAERS Safety Report 8434955-5 (Version None)
Quarter: 2012Q2

REPORT INFORMATION
  Report Type: 
  Country: None (occurrence: None)
  Receive Date: 20120614
  Receipt Date: 20120607
  Transmission Date: 20120825
  Serious: No
  Sender: FDA-Public Use
  Company Number: US-PFIZER INC-2012138486

PATIENT
  Sex: Female
  Weight: 124 kg

DRUGS (11)
  1. OMEGA [Concomitant]
     Dosage: 300 MG, DAILY
  2. VITAMIN D [Concomitant]
     Dosage: 2000 IU, 2X/DAY
  3. REQUIP [Concomitant]
     Dosage: 1 MG, DAILY
  4. ENALAPRIL [Concomitant]
     Dosage: 5 MG, DAILY
  5. PREMARIN [Suspect]
     Indication: HORMONE REPLACEMENT THERAPY
     Dosage: 0.9 MG, 1X/DAY
     Route: 048
     Dates: start: 20060101
  6. METFORMIN [Concomitant]
     Dosage: 2000 MG, 2X/DAY
  7. METOPROLOL [Concomitant]
     Dosage: 50 MG, 2X/DAY
  8. LEFLUNOMIDE [Concomitant]
     Dosage: 20 MG, 2X/DAY
  9. ASPIRIN [Concomitant]
     Dosage: 81 MG, DAILY
  10. SYNTHROID [Concomitant]
     Dosage: 150 UG, DAILY
  11. PRILOSEC [Concomitant]
     Dosage: 20 MG, 2X/DAY

REACTIONS (1)
  - WEIGHT INCREASED [None]
